FAERS Safety Report 5238568-8 (Version None)
Quarter: 2007Q1

REPORT INFORMATION
  Report Type: 
  Country: None (occurrence: None)
  Receive Date: 20070209
  Receipt Date: 20070201
  Transmission Date: 20070707
  Serious: Yes (Death)
  Sender: FDA-Public Use
  Company Number: 2007-00568

PATIENT
  Age: 19 Year

DRUGS (1)
  1. CLONIDINE [Suspect]

REACTIONS (1)
  - CARDIO-RESPIRATORY ARREST [None]
